FAERS Safety Report 12401973 (Version 2)
Quarter: 2016Q3

REPORT INFORMATION
  Report Type: Spontaneous
  Country: US (occurrence: US)
  Receive Date: 20160525
  Receipt Date: 20160802
  Transmission Date: 20161109
  Serious: No
  Sender: FDA-Public Use
  Company Number: US-PFIZER INC-2016270744

PATIENT
  Age: 67 Year
  Sex: Female

DRUGS (4)
  1. ACTHREL [Concomitant]
     Active Substance: CORTICORELIN OVINE TRIFLUTATE
     Dosage: UNK
  2. XELJANZ [Suspect]
     Active Substance: TOFACITINIB CITRATE
     Dosage: 5 MG, 2X/DAY
     Route: 048
  3. XELJANZ [Suspect]
     Active Substance: TOFACITINIB CITRATE
     Indication: RHEUMATOID ARTHRITIS
     Dosage: 5 MG, UNK
     Route: 048
     Dates: start: 201605
  4. LANTUS [Concomitant]
     Active Substance: INSULIN GLARGINE
     Dosage: UNK

REACTIONS (5)
  - Epigastric discomfort [Recovering/Resolving]
  - Weight increased [Unknown]
  - Gastric mucosa erythema [Recovering/Resolving]
  - Blood cholesterol increased [Recovering/Resolving]
  - Diarrhoea [Unknown]
